FAERS Safety Report 9828153 (Version 1)
Quarter: 2014Q1

REPORT INFORMATION
  Report Type: Spontaneous
  Country: US (occurrence: US)
  Receive Date: 20140117
  Receipt Date: 20140117
  Transmission Date: 20141002
  Serious: No
  Sender: FDA-Public Use
  Company Number: US-GILEAD-2011-0036092

PATIENT
  Age: 47 Year
  Sex: Male

DRUGS (1)
  1. ATRIPLA [Suspect]
     Indication: HIV INFECTION

REACTIONS (4)
  - Feeling abnormal [Recovered/Resolved]
  - Balance disorder [Unknown]
  - Balance disorder [Unknown]
  - Initial insomnia [Unknown]
